FAERS Safety Report 12181794 (Version 4)
Quarter: 2016Q2

REPORT INFORMATION
  Report Type: Spontaneous
  Country: CZ (occurrence: CZ)
  Receive Date: 20160315
  Receipt Date: 20160429
  Transmission Date: 20160815
  Serious: Yes (Other)
  Sender: FDA-Public Use
  Company Number: CZ-PFIZER INC-2016150173

PATIENT
  Age: 4 Year
  Sex: Female

DRUGS (3)
  1. DOXORUBICIN HCL [Suspect]
     Active Substance: DOXORUBICIN HYDROCHLORIDE
     Indication: MEDULLOBLASTOMA
     Dosage: 70 MG/M2, UNK (48-H INFUSION)
  2. METHOTREXATE SODIUM. [Suspect]
     Active Substance: METHOTREXATE SODIUM
     Indication: MEDULLOBLASTOMA
     Dosage: 2 MG, DAILY
  3. VINCRISTINE [Suspect]
     Active Substance: VINCRISTINE
     Indication: MEDULLOBLASTOMA
     Dosage: 1.5 MG/M2, UNK

REACTIONS (3)
  - Toxicity to various agents [Recovered/Resolved]
  - Psychomotor hyperactivity [Recovered/Resolved]
  - Headache [Recovered/Resolved]
